FAERS Safety Report 20490981 (Version 1)
Quarter: 2022Q1

REPORT INFORMATION
  Report Type: Spontaneous
  Country: US (occurrence: None)
  Receive Date: 20220218
  Receipt Date: 20220218
  Transmission Date: 20220424
  Serious: Yes (unspecified)
  Sender: FDA-Public Use
  Company Number: None

PATIENT
  Age: 39 Year
  Sex: Female
  Weight: 78.3 kg

DRUGS (6)
  1. SOTROVIMAB [Suspect]
     Active Substance: SOTROVIMAB
     Indication: COVID-19
     Dosage: FREQUENCY : ONCE;?
     Route: 042
     Dates: start: 20220216, end: 20220216
  2. SYNTHROID [Concomitant]
     Active Substance: LEVOTHYROXINE SODIUM
     Dates: start: 20170714
  3. AMLODIPINE [Concomitant]
     Active Substance: AMLODIPINE BESYLATE
     Dates: start: 20211208
  4. AZELASTINE [Concomitant]
     Active Substance: AZELASTINE
     Dates: start: 20191114
  5. FLOVENT HFA [Concomitant]
     Active Substance: FLUTICASONE PROPIONATE
     Dates: start: 20210414
  6. levalbuterol HFA [Concomitant]
     Dates: start: 20210920

REACTIONS (4)
  - Cough [None]
  - Flushing [None]
  - Paraesthesia [None]
  - Infusion related reaction [None]

NARRATIVE: CASE EVENT DATE: 20220216
